FAERS Safety Report 23227134 (Version 1)
Quarter: 2023Q4

REPORT INFORMATION
  Report Type: Spontaneous
  Country: US (occurrence: US)
  Receive Date: 20231124
  Receipt Date: 20231124
  Transmission Date: 20240110
  Serious: Yes (Other)
  Sender: FDA-Public Use
  Company Number: US-ENDO-CASE-0045951

PATIENT
  Sex: Male

DRUGS (4)
  1. ACETAMINOPHEN\OXYCODONE HYDROCHLORIDE [Suspect]
     Active Substance: ACETAMINOPHEN\OXYCODONE HYDROCHLORIDE
  2. PERCOCET [Suspect]
     Active Substance: ACETAMINOPHEN\OXYCODONE HYDROCHLORIDE
  3. OXYCODONE [Suspect]
     Active Substance: OXYCODONE
  4. ACETAMINOPHEN [Suspect]
     Active Substance: ACETAMINOPHEN

REACTIONS (12)
  - Overdose [Unknown]
  - Dependence [Unknown]
  - Gastrointestinal tract irritation [Unknown]
  - Anal injury [Unknown]
  - Intracranial pressure increased [Unknown]
  - CSF volume increased [Unknown]
  - Subdural haematoma [Unknown]
  - Cardiovascular disorder [Unknown]
  - Insomnia [Unknown]
  - Mental disorder [Unknown]
  - Withdrawal syndrome [Unknown]
  - Hypertension [Unknown]
